FAERS Safety Report 20459454 (Version 4)
Quarter: 2022Q3

REPORT INFORMATION
  Report Type: Report from Study
  Country: CO (occurrence: CO)
  Receive Date: 20220211
  Receipt Date: 20220718
  Transmission Date: 20221027
  Serious: Yes (Hospitalization, Other)
  Sender: FDA-Public Use
  Company Number: CO-ABBVIE-22K-036-4272756-00

PATIENT
  Age: 56 Year
  Sex: Female
  Weight: 68 kg

DRUGS (6)
  1. HUMIRA [Suspect]
     Active Substance: ADALIMUMAB
     Indication: Rheumatoid arthritis
     Route: 058
     Dates: start: 20171205
  2. HUMIRA [Suspect]
     Active Substance: ADALIMUMAB
     Indication: Rheumatoid arthritis
     Route: 058
     Dates: end: 20220103
  3. HUMIRA [Suspect]
     Active Substance: ADALIMUMAB
     Route: 058
     Dates: start: 2022, end: 20220622
  4. COVID-19 VACCINE [Concomitant]
     Indication: COVID-19 immunisation
     Dosage: FIRST DOSE
     Route: 030
  5. COVID-19 VACCINE [Concomitant]
     Dosage: SECOND DOSE
     Route: 030
  6. COVID-19 VACCINE [Concomitant]
     Dosage: THIRD DOSE
     Route: 030
     Dates: start: 2022, end: 2022

REACTIONS (11)
  - Embolism [Recovered/Resolved]
  - Pulmonary embolism [Recovered/Resolved with Sequelae]
  - General physical health deterioration [Recovering/Resolving]
  - Illness [Not Recovered/Not Resolved]
  - Malaise [Recovered/Resolved]
  - Respiratory disorder [Unknown]
  - Osteoporosis [Unknown]
  - Dry throat [Recovered/Resolved]
  - Bone disorder [Not Recovered/Not Resolved]
  - COVID-19 [Recovered/Resolved]
  - Rheumatoid arthritis [Not Recovered/Not Resolved]

NARRATIVE: CASE EVENT DATE: 20220124
